FAERS Safety Report 9004252 (Version 1)
Quarter: 2013Q1

REPORT INFORMATION
  Report Type: Spontaneous
  Country: US (occurrence: US)
  Receive Date: 20130109
  Receipt Date: 20130109
  Transmission Date: 20140127
  Serious: Yes (Hospitalization, Other)
  Sender: FDA-Public Use
  Company Number: US-AMGEN-USASP2013000950

PATIENT
  Sex: Female

DRUGS (2)
  1. ENBREL [Suspect]
     Indication: RHEUMATOID ARTHRITIS
     Dosage: 50 MG, QWK
     Dates: start: 20010101
  2. INFLUENZA VACCINE [Concomitant]
     Dosage: UNK

REACTIONS (6)
  - Renal disorder [Not Recovered/Not Resolved]
  - Tinnitus [Recovered/Resolved]
  - Brain oedema [Recovered/Resolved]
  - Mydriasis [Recovered/Resolved]
  - Pupil fixed [Recovered/Resolved]
  - Lyme disease [Recovered/Resolved]
